FAERS Safety Report 6708565-1 (Version None)
Quarter: 2010Q2

REPORT INFORMATION
  Report Type: 
  Country: None (occurrence: None)
  Receive Date: 20100503
  Receipt Date: 20100421
  Transmission Date: 20101027
  Serious: Yes (Hospitalization)
  Sender: FDA-Public Use
  Company Number: FR-GENENTECH-298914

PATIENT
  Sex: Female
  Weight: 58 kg

DRUGS (15)
  1. RITUXIMAB [Suspect]
     Indication: B-CELL LYMPHOMA
     Dosage: UNK
     Route: 042
     Dates: end: 20050101
  2. RITUXIMAB [Suspect]
     Dosage: UNK
     Route: 042
     Dates: end: 20061101
  3. RITUXIMAB [Suspect]
     Dosage: 620 MG, UNK
     Route: 042
  4. RITUXIMAB [Suspect]
     Dosage: 600 MG, UNK
     Route: 042
  5. RITUXIMAB [Suspect]
     Dosage: 590 MG, UNK
     Route: 042
     Dates: start: 20090126, end: 20091123
  6. RITUXIMAB [Suspect]
     Dosage: 375 MG/M2, UNK
     Route: 042
     Dates: end: 20090727
  7. CYCLOPHOSPHAMIDE [Concomitant]
     Indication: B-CELL LYMPHOMA
     Dosage: UNK
     Dates: start: 20080609, end: 20080926
  8. DOXORUBICIN HCL [Concomitant]
     Indication: B-CELL LYMPHOMA
     Dosage: UNK
     Dates: start: 20080609, end: 20080926
  9. VINCRISTINE [Concomitant]
     Indication: B-CELL LYMPHOMA
     Dosage: UNK
     Dates: start: 20080609, end: 20080926
  10. METHYLPREDNISOLONE [Concomitant]
     Indication: B-CELL LYMPHOMA
     Dosage: 60 MG, UNK
     Dates: start: 20080609
  11. METHYLPREDNISOLONE [Concomitant]
     Dosage: 64 MG, UNK
     Dates: start: 20081023, end: 20081113
  12. NOVONORM [Concomitant]
     Indication: DIABETES MELLITUS
     Dosage: UNK
     Route: 048
     Dates: start: 20000101
  13. DIAMICRON [Concomitant]
     Indication: DIABETES MELLITUS
     Dosage: UNK
     Route: 048
     Dates: start: 20000101
  14. TAHOR [Concomitant]
     Indication: HYPERCHOLESTEROLAEMIA
     Dosage: UNK
     Route: 048
     Dates: start: 20000101
  15. EFFEXOR [Concomitant]
     Indication: ANXIETY
     Dosage: UNK
     Route: 048
     Dates: start: 20000101

REACTIONS (2)
  - MYOCARDIAL INFARCTION [None]
  - NEUTROPENIA [None]
